FAERS Safety Report 15536563 (Version 1)
Quarter: 2018Q4

REPORT INFORMATION
  Report Type: Spontaneous
  Country: FR (occurrence: FR)
  Receive Date: 20181022
  Receipt Date: 20181022
  Transmission Date: 20190205
  Serious: Yes (Hospitalization)
  Sender: FDA-Public Use
  Company Number: PHHY2018FR132502

PATIENT
  Age: 83 Year
  Sex: Male

DRUGS (2)
  1. ENTRESTO [Suspect]
     Active Substance: SACUBITRIL\VALSARTAN
     Dosage: 50 MG (24/26 MG), UNK
     Route: 065
  2. ENTRESTO [Suspect]
     Active Substance: SACUBITRIL\VALSARTAN
     Indication: CARDIAC FAILURE
     Dosage: 2 DF (97/103 MG), QD
     Route: 065
     Dates: start: 201804

REACTIONS (6)
  - Toxicity to various agents [Unknown]
  - Acute kidney injury [Unknown]
  - Gastroenteritis [Unknown]
  - Cardiorenal syndrome [Unknown]
  - Cardiac failure [Unknown]
  - Hepatic congestion [Unknown]
